FAERS Safety Report 15028725 (Version 1)
Quarter: 2018Q2

REPORT INFORMATION
  Report Type: Report from Study
  Country: US (occurrence: US)
  Receive Date: 20180619
  Receipt Date: 20180619
  Transmission Date: 20180711
  Serious: Yes (Hospitalization, Other)
  Sender: FDA-Public Use
  Company Number: US-TAKEDA-2018TUS009303

PATIENT
  Sex: Male

DRUGS (2)
  1. PONATINIB [Suspect]
     Active Substance: PONATINIB
     Dosage: 15 MG, QD
     Route: 048
     Dates: start: 20171025
  2. PONATINIB [Suspect]
     Active Substance: PONATINIB
     Indication: CHLOROMA
     Dosage: 30 MG, QD
     Route: 048
     Dates: start: 201610

REACTIONS (4)
  - Liver function test increased [Unknown]
  - Ileus [Unknown]
  - Neoplasm progression [Unknown]
  - Off label use [Unknown]
